FAERS Safety Report 5450113-0 (Version None)
Quarter: 2007Q3

REPORT INFORMATION
  Report Type: 
  Country: None (occurrence: None)
  Receive Date: 20070912
  Receipt Date: 20070904
  Transmission Date: 20080115
  Serious: Yes (Death)
  Sender: FDA-Public Use
  Company Number: JP-BRACCO-BRO-008485

PATIENT
  Sex: Male

DRUGS (10)
  1. IOPAMIRON [Suspect]
     Indication: BLADDER CANCER
     Route: 042
     Dates: start: 20050323, end: 20050323
  2. IOPAMIRON [Suspect]
     Route: 042
     Dates: start: 20050323, end: 20050323
  3. FURTULON [Concomitant]
     Route: 050
     Dates: end: 20050322
  4. MARZULENE [Concomitant]
     Route: 050
     Dates: end: 20050322
  5. DEPAS [Concomitant]
     Route: 050
  6. BISOLVON [Concomitant]
     Route: 050
  7. PROMAC                                  /JPN/ [Concomitant]
     Route: 050
  8. FAMOTIDINE [Concomitant]
     Route: 050
  9. FLUTIDE ROTADISK [Concomitant]
     Route: 050
  10. TERSIGAN METERED AEROSOL [Concomitant]
     Route: 055

REACTIONS (6)
  - ANAPHYLACTIC SHOCK [None]
  - CARDIAC ARREST [None]
  - COUGH [None]
  - EXTREMITY CONTRACTURE [None]
  - FLUSHING [None]
  - RESPIRATORY ARREST [None]
